FAERS Safety Report 8256929 (Version 2)
Quarter: 2017Q2

REPORT INFORMATION
  Report Type: Spontaneous
  Country: JP (occurrence: JP)
  Receive Date: 20111121
  Receipt Date: 20170606
  Transmission Date: 20170830
  Serious: Yes (Other)
  Sender: FDA-Public Use
  Company Number: JP-GLAXOSMITHKLINE-B0698181A

PATIENT
  Age: 86 Year
  Sex: Male

DRUGS (4)
  1. FUROSEMIDE. [Concomitant]
     Active Substance: FUROSEMIDE
     Route: 065
     Dates: end: 20091116
  2. PERSANTIN [Concomitant]
     Active Substance: DIPYRIDAMOLE
     Route: 065
     Dates: end: 20091116
  3. URIEF [Concomitant]
     Active Substance: SILODOSIN
     Route: 048
     Dates: end: 20091116
  4. DUTASTERIDE. [Suspect]
     Active Substance: DUTASTERIDE
     Indication: BENIGN PROSTATIC HYPERPLASIA
     Dosage: 0.5 MG, QD
     Route: 048
     Dates: start: 20091016, end: 20091116

REACTIONS (10)
  - Aspartate aminotransferase increased [Unknown]
  - Blood albumin decreased [Unknown]
  - Decreased appetite [Unknown]
  - Malaise [Recovering/Resolving]
  - Gamma-glutamyltransferase increased [Unknown]
  - Drug-induced liver injury [Unknown]
  - Alanine aminotransferase increased [Unknown]
  - Blood alkaline phosphatase increased [Unknown]
  - Prothrombin time prolonged [Unknown]
  - Protein total decreased [Unknown]

NARRATIVE: CASE EVENT DATE: 200910
